FAERS Safety Report 18810849 (Version 1)
Quarter: 2021Q1

REPORT INFORMATION
  Report Type: Spontaneous
  Country: DE (occurrence: DE)
  Receive Date: 20210129
  Receipt Date: 20210129
  Transmission Date: 20210419
  Serious: Yes (Other)
  Sender: FDA-Public Use
  Company Number: DE-ASTRAZENECA-2021A013136

PATIENT
  Age: 47 Year
  Sex: Female

DRUGS (10)
  1. FENOTEROL [Concomitant]
     Active Substance: FENOTEROL
  2. BUDESONID/FORMOTEROL [Suspect]
     Active Substance: BUDESONIDE\FORMOTEROL
     Indication: CHRONIC OBSTRUCTIVE PULMONARY DISEASE
     Route: 055
     Dates: start: 2006
  3. SALMETEROL [Concomitant]
     Active Substance: SALMETEROL
  4. PREDNISOLON [Concomitant]
     Active Substance: PREDNISOLONE
  5. GLYCOPYRRONIUM [Concomitant]
     Active Substance: GLYCOPYRRONIUM
  6. PANTOPRAZOL [Concomitant]
     Active Substance: PANTOPRAZOLE SODIUM
  7. FORMOTEROL [Concomitant]
     Active Substance: FORMOTEROL
  8. AMBROXOL [Concomitant]
     Active Substance: AMBROXOL
  9. CROMOGLICINSAURE ROXITHROMYCIN [Concomitant]
  10. INDACATEROL [Concomitant]
     Active Substance: INDACATEROL

REACTIONS (1)
  - Cystic lung disease [Unknown]

NARRATIVE: CASE EVENT DATE: 2006
